FAERS Safety Report 4871357-2 (Version None)
Quarter: 2006Q1

REPORT INFORMATION
  Report Type: 
  Country: None (occurrence: None)
  Receive Date: 20060103
  Receipt Date: 20051005
  Transmission Date: 20060701
  Serious: Yes (Hospitalization)
  Sender: FDA-Public Use
  Company Number: US-MERCK-0510USA05311

PATIENT
  Age: 52 Year
  Sex: Female
  Weight: 84 kg

DRUGS (10)
  1. VIOXX [Suspect]
     Indication: OSTEOARTHRITIS
     Route: 048
     Dates: start: 20020101, end: 20040101
  2. TOPROL-XL [Concomitant]
     Route: 065
  3. DIOVAN [Concomitant]
     Route: 065
  4. LIPITOR [Concomitant]
     Route: 065
  5. ECOTRIN [Concomitant]
     Route: 065
  6. DYAZIDE [Concomitant]
     Route: 065
  7. ULTRACET [Concomitant]
     Route: 065
  8. POTASSIUM (UNSPECIFIED) [Concomitant]
     Route: 065
  9. ALPRAZOLAM [Concomitant]
     Route: 065
  10. ZOLOFT [Concomitant]
     Route: 065

REACTIONS (17)
  - ANGINA PECTORIS [None]
  - ARTHRALGIA [None]
  - BLOOD PRESSURE INCREASED [None]
  - CARDIOVASCULAR DISORDER [None]
  - CHEST PAIN [None]
  - CORONARY ARTERY DISEASE [None]
  - CORONARY ARTERY RESTENOSIS [None]
  - FAMILIAL TREMOR [None]
  - FATIGUE [None]
  - GASTROINTESTINAL OBSTRUCTION [None]
  - GLUCOSE TOLERANCE IMPAIRED [None]
  - INSOMNIA [None]
  - LUMBAR SPINAL STENOSIS [None]
  - MONARTHRITIS [None]
  - MUSCLE SPASMS [None]
  - RENAL FAILURE [None]
  - SINUS BRADYCARDIA [None]
